FAERS Safety Report 25201634 (Version 1)
Quarter: 2025Q2

REPORT INFORMATION
  Report Type: Spontaneous
  Country: BR (occurrence: BR)
  Receive Date: 20250416
  Receipt Date: 20250416
  Transmission Date: 20250717
  Serious: Yes (Other)
  Sender: SANDOZ
  Company Number: BR-002147023-NVSC2023BR277130

PATIENT
  Age: 64 Year
  Sex: Female

DRUGS (1)
  1. BUDESONIDE\FORMOTEROL FUMARATE [Suspect]
     Active Substance: BUDESONIDE\FORMOTEROL FUMARATE
     Indication: Bronchitis
     Dosage: UNK, QD (12/400 MCG) (ONCE PER DAY)
     Route: 065

REACTIONS (2)
  - Neoplasm malignant [Recovered/Resolved]
  - Inappropriate schedule of product administration [Unknown]
